FAERS Safety Report 10871363 (Version 4)
Quarter: 2015Q1

REPORT INFORMATION
  Report Type: Spontaneous
  Country: US (occurrence: US)
  Receive Date: 20150226
  Receipt Date: 20150226
  Transmission Date: 20150721
  Serious: Yes (Hospitalization, Other)
  Sender: FDA-Public Use
  Company Number: US-UCBSA-2015005161

PATIENT
  Age: 29 Year
  Sex: Female
  Weight: 108 kg

DRUGS (10)
  1. ZOFRAN [Concomitant]
     Active Substance: ONDANSETRON HYDROCHLORIDE
     Indication: PRODUCT USED FOR UNKNOWN INDICATION
     Dosage: UNK
  2. KEPPRA [Suspect]
     Active Substance: LEVETIRACETAM
     Dosage: 2000 MG, 2X/DAY (BID)
     Route: 048
     Dates: start: 201411
  3. ATIVAN [Concomitant]
     Active Substance: LORAZEPAM
     Indication: SEIZURE
     Dosage: UNK, AS NEEDED (PRN)
  4. VIMPAT [Suspect]
     Active Substance: LACOSAMIDE
     Indication: SEIZURE
     Dosage: 50 MG, 2X/DAY (BID)
     Route: 048
     Dates: start: 201312, end: 201411
  5. VIMPAT [Suspect]
     Active Substance: LACOSAMIDE
     Dosage: 200 MG AM AND 300 MG PM
     Route: 048
     Dates: start: 201411
  6. DILANTIN [Concomitant]
     Active Substance: PHENYTOIN
     Indication: PRODUCT USED FOR UNKNOWN INDICATION
     Dosage: 100 MG, 2X/DAY (BID)
     Dates: start: 2014, end: 2014
  7. KEPPRA [Suspect]
     Active Substance: LEVETIRACETAM
     Indication: SEIZURE
     Dosage: 1750 MG, 2X/DAY (BID)
     Route: 048
     Dates: start: 201310, end: 201411
  8. ZANTAC [Concomitant]
     Active Substance: RANITIDINE HYDROCHLORIDE
     Indication: PRODUCT USED FOR UNKNOWN INDICATION
     Dosage: UNK
  9. TEMOZOLOMIDE. [Suspect]
     Active Substance: TEMOZOLOMIDE
     Indication: CHEMOTHERAPY
     Dosage: UNK
     Dates: end: 2015
  10. DILANTIN [Concomitant]
     Active Substance: PHENYTOIN
     Dosage: 200 MG, 2X/DAY (BID)
     Dates: start: 201411

REACTIONS (7)
  - Neutropenia [Recovered/Resolved]
  - Seizure [Recovered/Resolved]
  - Overdose [Unknown]
  - Generalised tonic-clonic seizure [Unknown]
  - Off label use [Unknown]
  - Stress [Unknown]
  - Complex partial seizures [Unknown]

NARRATIVE: CASE EVENT DATE: 201310
